FAERS Safety Report 4636945-7 (Version None)
Quarter: 2005Q2

REPORT INFORMATION
  Report Type: 
  Country: None (occurrence: None)
  Receive Date: 20050414
  Receipt Date: 20050407
  Transmission Date: 20051028
  Serious: Yes (Hospitalization, Other)
  Sender: FDA-Public Use
  Company Number: FRWYE566707APR05

PATIENT
  Age: 76 Year
  Sex: Female

DRUGS (10)
  1. BISOPROLOL FUMARATE [Suspect]
     Dosage: ORAL
     Route: 048
     Dates: end: 20041209
  2. CAPTOPRIL AND HYDROCHLOROTHIAZIDE [Suspect]
     Indication: HYPERTENSION
     Dosage: ORAL
     Route: 048
     Dates: end: 20041209
  3. PIASCLEDINE (PERSEAE OLEUM/SOYA OIL. 0) [Suspect]
     Dosage: ORAL
     Route: 048
     Dates: end: 20041209
  4. PROZAC [Suspect]
     Indication: DEPRESSION
     Dosage: ORAL
     Route: 048
     Dates: end: 20041209
  5. TANAKAN (GINKGO TREE LEAVES EXTRACT, 0) [Suspect]
     Dosage: ORAL
     Route: 048
     Dates: end: 20041209
  6. VEINAMITOL (TROXERUTIN, 0) [Suspect]
     Dosage: ORAL
     Route: 048
     Dates: end: 20041209
  7. PLAVIX [Concomitant]
  8. DIAMICRON (GLICLAZIDE) [Concomitant]
  9. STILNOX (ZOLPIDEM) [Concomitant]
  10. LEXOMIL (BROMAZEPAM) [Concomitant]

REACTIONS (2)
  - CONVULSION [None]
  - HYPONATRAEMIA [None]
